FAERS Safety Report 7171024-9 (Version None)
Quarter: 2010Q4

REPORT INFORMATION
  Report Type: 
  Country: None (occurrence: None)
  Receive Date: 20101123
  Receipt Date: 20100817
  Transmission Date: 20110411
  Serious: No
  Sender: FDA-Public Use
  Company Number: 017394

PATIENT
  Sex: Female
  Weight: 53.0709 kg

DRUGS (6)
  1. CIMZIA [Suspect]
     Indication: CROHN'S DISEASE
     Dosage: (200 MG 1X/2 WEEKS SUBCUTANEOUS)
     Route: 058
     Dates: start: 20080901
  2. AZATHIOPRINE [Concomitant]
  3. PERCOCET [Concomitant]
  4. PEPCID [Concomitant]
  5. FENTANYL [Concomitant]
  6. CALCIUM W/VITAMIN D /00188401/ [Concomitant]

REACTIONS (1)
  - INJECTION SITE REACTION [None]
